FAERS Safety Report 5838907-0 (Version None)
Quarter: 2008Q3

REPORT INFORMATION
  Report Type: 
  Country: None (occurrence: None)
  Receive Date: 20080808
  Receipt Date: 20080801
  Transmission Date: 20090109
  Serious: Yes (Hospitalization)
  Sender: FDA-Public Use
  Company Number: PHHO2008IT09259

PATIENT
  Sex: Male

DRUGS (1)
  1. STI571/CGP57148B T35717+CAPS [Suspect]
     Indication: GASTROINTESTINAL STROMAL TUMOUR
     Dosage: 400 MG, QD
     Route: 048
     Dates: start: 20080108, end: 20080408

REACTIONS (2)
  - DYSPNOEA [None]
  - PULMONARY FIBROSIS [None]
